FAERS Safety Report 15397374 (Version 1)
Quarter: 2018Q3

REPORT INFORMATION
  Report Type: Spontaneous
  Country: CZ (occurrence: CZ)
  Receive Date: 20180918
  Receipt Date: 20180918
  Transmission Date: 20181010
  Serious: Yes (Life-Threatening, Other)
  Sender: FDA-Public Use
  Company Number: CZ-PFIZER INC-2018372547

PATIENT
  Age: 72 Year
  Sex: Male
  Weight: 85 kg

DRUGS (4)
  1. LYRICA [Concomitant]
     Active Substance: PREGABALIN
     Indication: ANXIETY DISORDER
     Dosage: 75 MG, 3X/DAY (2?0?1, TWO IN THE MORNING, ONE IN THE EVENING)
     Route: 048
     Dates: start: 2016, end: 20180820
  2. TULIP [ATORVASTATIN CALCIUM] [Concomitant]
     Dosage: 1 DF, (LONG?TERM MEDICATION)
  3. ZOLOFT [Suspect]
     Active Substance: SERTRALINE HYDROCHLORIDE
     Indication: DEPRESSION
     Dosage: 50 MG, 1X/DAY (1?0?0, IN THE MORNING)
     Route: 048
     Dates: start: 20180730, end: 20180820
  4. TRITACE COMBI [Concomitant]
     Dosage: 1 DF, (LONG?TERM MEDICATION)

REACTIONS (9)
  - Serotonin syndrome [Recovered/Resolved]
  - Agitation [Recovered/Resolved]
  - Hyperhidrosis [Recovered/Resolved]
  - Confusional state [Recovered/Resolved]
  - Accelerated hypertension [Recovered/Resolved]
  - Tearfulness [Recovered/Resolved]
  - Restlessness [Recovered/Resolved]
  - Tremor [Recovered/Resolved]
  - Myoclonus [Unknown]

NARRATIVE: CASE EVENT DATE: 20180820
